FAERS Safety Report 15264197 (Version 1)
Quarter: 2018Q3

REPORT INFORMATION
  Report Type: Spontaneous
  Country: US (occurrence: US)
  Receive Date: 20180721
  Receipt Date: 20180721
  Transmission Date: 20181010
  Serious: Yes (Life-Threatening, Hospitalization, Other)
  Sender: FDA-Public Use
  Company Number: None

PATIENT
  Age: 62 Year
  Sex: Female
  Weight: 90 kg

DRUGS (13)
  1. HYDROCHLOROTHIAZIDE. [Concomitant]
     Active Substance: HYDROCHLOROTHIAZIDE
  2. TRAMADOL. [Concomitant]
     Active Substance: TRAMADOL
  3. MIRALAX [Concomitant]
     Active Substance: POLYETHYLENE GLYCOL 3350
  4. COLACE [Concomitant]
     Active Substance: DOCUSATE SODIUM
  5. ATORVASTATIN [Concomitant]
     Active Substance: ATORVASTATIN
  6. LOSARTAN. [Concomitant]
     Active Substance: LOSARTAN
  7. VALSARTAN 320 MG TABLETS USP [Suspect]
     Active Substance: VALSARTAN
     Indication: HYPERTENSION
     Dosage: ?          QUANTITY:1 DF DOSAGE FORM;?
     Route: 048
     Dates: start: 20160223, end: 20180716
  8. GABAPENTIN. [Concomitant]
     Active Substance: GABAPENTIN
  9. LBS II [Concomitant]
  10. JANUVIA [Concomitant]
     Active Substance: SITAGLIPTIN PHOSPHATE
  11. RECTICARE [Concomitant]
     Active Substance: LIDOCAINE
  12. HYDROCORTISONE AC [Concomitant]
  13. FLONASE [Concomitant]
     Active Substance: FLUTICASONE PROPIONATE

REACTIONS (2)
  - Uterine cancer [None]
  - Lymphoma [None]

NARRATIVE: CASE EVENT DATE: 20180312
